FAERS Safety Report 8240292-4 (Version None)
Quarter: 2012Q1

REPORT INFORMATION
  Report Type: 
  Country: None (occurrence: None)
  Receive Date: 20120328
  Receipt Date: 20120328
  Transmission Date: 20120608
  Serious: Yes (Life-Threatening)
  Sender: FDA-Public Use
  Company Number: None

PATIENT
  Age: 30 Year
  Sex: Female
  Weight: 60.327 kg

DRUGS (2)
  1. SPRINTEC [Concomitant]
     Dates: start: 20101215, end: 20110608
  2. LOESTRIN 1.5/30 [Suspect]
     Dates: start: 20091209, end: 20101111

REACTIONS (5)
  - CHEST PAIN [None]
  - SLEEP APNOEA SYNDROME [None]
  - MIDDLE INSOMNIA [None]
  - BURNING SENSATION [None]
  - BREAST CANCER METASTATIC [None]
